FAERS Safety Report 6921417-7 (Version None)
Quarter: 2010Q3

REPORT INFORMATION
  Report Type: 
  Country: None (occurrence: None)
  Receive Date: 20100812
  Receipt Date: 20100730
  Transmission Date: 20110219
  Serious: Yes (Other)
  Sender: FDA-Public Use
  Company Number: PHFR2010GB00904

PATIENT
  Sex: Female

DRUGS (1)
  1. CLOZARIL [Suspect]
     Indication: SCHIZOPHRENIA
     Dosage: UNK
     Dates: start: 20011015

REACTIONS (4)
  - HAEMOGLOBIN DECREASED [None]
  - INADEQUATE DIET [None]
  - IRON DEFICIENCY ANAEMIA [None]
  - WHITE BLOOD CELL COUNT INCREASED [None]
